FAERS Safety Report 8671275 (Version 2)
Quarter: 2012Q4

REPORT INFORMATION
  Report Type: 
  Country: US (occurrence: US)
  Receive Date: 20120718
  Receipt Date: 20120914
  Transmission Date: 20130627
  Serious: Yes (Other)
  Sender: FDA-Public Use
  Company Number: PHEH2012US013797

PATIENT
  Sex: Female

DRUGS (1)
  1. EXELON PATCH [Suspect]
     Dosage: 4.6 mg, Daily
     Route: 062
     Dates: start: 20120602, end: 20120618

REACTIONS (2)
  - Confusional state [Unknown]
  - Memory impairment [Unknown]
